FAERS Safety Report 5443060-1 (Version None)
Quarter: 2007Q3

REPORT INFORMATION
  Report Type: 
  Country: None (occurrence: None)
  Receive Date: 20070905
  Receipt Date: 20070831
  Transmission Date: 20080115
  Serious: Yes (Other)
  Sender: FDA-Public Use
  Company Number: PHNU2007DE03018

PATIENT
  Sex: Female

DRUGS (2)
  1. VOLTAREN [Suspect]
     Indication: BACK PAIN
     Route: 061
  2. METAMIZOLE [Concomitant]

REACTIONS (2)
  - ANAEMIA [None]
  - GASTROINTESTINAL DISORDER [None]
